FAERS Safety Report 8716373 (Version 2)
Quarter: 2013Q4

REPORT INFORMATION
  Report Type: Spontaneous
  Country: US (occurrence: US)
  Receive Date: 20120810
  Receipt Date: 20131101
  Transmission Date: 20140711
  Serious: No
  Sender: FDA-Public Use
  Company Number: US-009507513-1208USA002244

PATIENT
  Age: 6 Year
  Sex: Male
  Weight: 30.84 kg

DRUGS (3)
  1. MIRALAX [Suspect]
     Indication: CONSTIPATION
     Dosage: 17 G, ONCE
     Route: 048
     Dates: start: 20120613
  2. MIRALAX [Suspect]
     Indication: MEDICAL OBSERVATION
  3. CLARITIN [Concomitant]
     Dosage: 10 MG, QD
     Route: 048

REACTIONS (2)
  - Accidental exposure to product by child [Recovering/Resolving]
  - Overdose [Recovering/Resolving]
